FAERS Safety Report 4798982-1 (Version None)
Quarter: 2005Q4

REPORT INFORMATION
  Report Type: 
  Country: None (occurrence: None)
  Receive Date: 20051011
  Receipt Date: 20050906
  Transmission Date: 20060501
  Serious: Yes (Hospitalization)
  Sender: FDA-Public Use
  Company Number: 8012421

PATIENT
  Age: 51 Year
  Sex: Female

DRUGS (9)
  1. PREDNISOLONE [Suspect]
     Indication: PAIN
     Dosage: 20 MG/D PO
     Route: 048
     Dates: start: 19930101, end: 19940101
  2. PREDNISOLONE [Suspect]
     Indication: PARALYSIS
     Dosage: 20 MG/D PO
     Route: 048
     Dates: start: 19930101, end: 19940101
  3. PREDNISOLONE [Suspect]
     Indication: GLUCOCORTICOIDS DECREASED
     Dosage: 10MG/D
     Dates: start: 19940101, end: 19960101
  4. PREDNISOLONE [Suspect]
     Indication: PAIN
     Dosage: 10MG/D
     Dates: start: 19940101, end: 19960101
  5. PREDNISOLONE [Suspect]
     Indication: PARALYSIS
     Dosage: 10MG/D
     Dates: start: 19940101, end: 19960101
  6. PREDNISOLONE [Suspect]
     Indication: GLUCOCORTICOIDS DECREASED
     Dosage: 60 MG/ D
     Dates: start: 19970101, end: 19970101
  7. PREDNISOLONE [Suspect]
     Indication: PAIN
     Dosage: 60 MG/ D
     Dates: start: 19970101, end: 19970101
  8. PREDNISOLONE [Suspect]
     Indication: PARALYSIS
     Dosage: 60 MG/ D
     Dates: start: 19970101, end: 19970101
  9. PREDNISOLONE [Suspect]
     Dosage: 5 MG/ D
     Dates: start: 19970101, end: 19990101

REACTIONS (16)
  - ABDOMINAL DISTENSION [None]
  - ADRENAL INSUFFICIENCY [None]
  - ANOREXIA [None]
  - BLOOD PRESSURE DECREASED [None]
  - FACE OEDEMA [None]
  - FATIGUE [None]
  - HYPOGLYCAEMIA [None]
  - HYPONATRAEMIA [None]
  - HYPOTENSION [None]
  - HYPOTHALAMO-PITUITARY DISORDERS [None]
  - NAUSEA [None]
  - PAIN [None]
  - PALLOR [None]
  - UPPER RESPIRATORY TRACT INFECTION [None]
  - VITH NERVE DISORDER [None]
  - WEIGHT DECREASED [None]
